FAERS Safety Report 7349363-8 (Version None)
Quarter: 2011Q1

REPORT INFORMATION
  Report Type: 
  Country: None (occurrence: None)
  Receive Date: 20110314
  Receipt Date: 20100329
  Transmission Date: 20110831
  Serious: Yes (Other)
  Sender: FDA-Public Use
  Company Number: US-ABBOTT-10P-163-0633197-00

PATIENT
  Sex: Male
  Weight: 145.73 kg

DRUGS (4)
  1. DEPAKOTE [Suspect]
     Indication: BIPOLAR DISORDER
     Dosage: LOT NUMBER WAS UNKNOWN.
     Route: 048
     Dates: start: 19990101, end: 20010101
  2. TESTOSTERONE SUPPLEMENTS [Concomitant]
     Indication: BLOOD TESTOSTERONE DECREASED
     Route: 048
  3. DEPAKOTE [Suspect]
     Dosage: 2 MONTH DROPPED 1000MG
     Route: 048
     Dates: start: 20100101
  4. DEPAKOTE [Suspect]
     Route: 048
     Dates: start: 20010101, end: 20100101

REACTIONS (4)
  - ALOPECIA [None]
  - HIGH DENSITY LIPOPROTEIN DECREASED [None]
  - WEIGHT INCREASED [None]
  - BLOOD TESTOSTERONE DECREASED [None]
